FAERS Safety Report 11410369 (Version 1)
Quarter: 2015Q3

REPORT INFORMATION
  Report Type: Spontaneous
  Country: US (occurrence: None)
  Receive Date: 20150820
  Receipt Date: 20150820
  Transmission Date: 20151125
  Serious: Yes (Hospitalization)
  Sender: FDA-Public Use
  Company Number: None

PATIENT
  Age: 52 Year
  Sex: Male
  Weight: 87.09 kg

DRUGS (16)
  1. COMMIT [Concomitant]
     Active Substance: NICOTINE
  2. CEFEPIME [Concomitant]
     Active Substance: CEFEPIME HYDROCHLORIDE
  3. HARVONI [Suspect]
     Active Substance: LEDIPASVIR\SOFOSBUVIR
     Indication: HEPATITIS C
     Dosage: 90/400MG
     Route: 048
     Dates: start: 20150408, end: 20150702
  4. CIPRO [Concomitant]
     Active Substance: CIPROFLOXACIN HYDROCHLORIDE
  5. MULTIVITAMIN [Concomitant]
     Active Substance: VITAMINS
  6. PRILOSEC [Concomitant]
     Active Substance: OMEPRAZOLE MAGNESIUM
  7. OXYCODONE [Concomitant]
     Active Substance: OXYCODONE
  8. VANCOMYCIN [Concomitant]
     Active Substance: VANCOMYCIN
  9. FERROUS SULFATE [Concomitant]
     Active Substance: FERROUS SULFATE\FERROUS SULFATE, DRIED
  10. LASIX [Concomitant]
     Active Substance: FUROSEMIDE
  11. CHOLESTYRAMINE. [Concomitant]
     Active Substance: CHOLESTYRAMINE
  12. ALDACTONE [Concomitant]
     Active Substance: SPIRONOLACTONE
  13. PERCOCET [Concomitant]
     Active Substance: ACETAMINOPHEN\OXYCODONE HYDROCHLORIDE
  14. KELFEX [Concomitant]
  15. FLAGYL [Concomitant]
     Active Substance: METRONIDAZOLE\METRONIDAZOLE HYDROCHLORIDE
  16. CIALIS [Concomitant]
     Active Substance: TADALAFIL

REACTIONS (5)
  - Lethargy [None]
  - Hypothermia [None]
  - Hypotension [None]
  - Abdominal pain [None]
  - Leukocytosis [None]

NARRATIVE: CASE EVENT DATE: 20150426
